FAERS Safety Report 4637636-9 (Version None)
Quarter: 2005Q2

REPORT INFORMATION
  Report Type: 
  Country: None (occurrence: None)
  Receive Date: 20050418
  Receipt Date: 20031213
  Transmission Date: 20051028
  Serious: Yes (Hospitalization)
  Sender: FDA-Public Use
  Company Number: JP-GLAXOSMITHKLINE-B0364185A

PATIENT
  Age: 52 Year
  Sex: Male

DRUGS (3)
  1. ZANTAC [Suspect]
     Indication: BACTERIAL INFECTION
     Dosage: 150MG TWICE PER DAY
     Route: 048
     Dates: start: 20031029, end: 20031104
  2. COLIOPAN [Suspect]
     Indication: ABDOMINAL PAIN
     Dosage: 15MG THREE TIMES PER DAY
     Route: 048
     Dates: start: 20031029, end: 20031104
  3. BIOFERMIN [Concomitant]
     Dosage: 1G THREE TIMES PER DAY
     Route: 048
     Dates: start: 20031029, end: 20031104

REACTIONS (4)
  - ERYTHEMA MULTIFORME [None]
  - PRURITUS [None]
  - RASH [None]
  - TOXIC SKIN ERUPTION [None]
